FAERS Safety Report 8891098 (Version 4)
Quarter: 2013Q3

REPORT INFORMATION
  Report Type: Report from Study
  Country: JP (occurrence: JP)
  Receive Date: 20121107
  Receipt Date: 20130812
  Transmission Date: 20140515
  Serious: Yes (Hospitalization)
  Sender: FDA-Public Use
  Company Number: JP-VERTEX PHARMACEUTICAL INC.-2012-024170

PATIENT
  Age: 63 Year
  Sex: Female

DRUGS (13)
  1. VX-950 (TELAPREVIR) [Suspect]
     Indication: CHRONIC HEPATITIS C
     Dosage: 1500 MG, QD
     Route: 048
     Dates: start: 20120907, end: 20121005
  2. PEGINTERFERON ALFA-2B [Suspect]
     Indication: CHRONIC HEPATITIS C
     Dosage: 1.5 ?G/KG, QW
     Route: 058
     Dates: start: 20120907
  3. REBETOL [Suspect]
     Indication: CHRONIC HEPATITIS C
     Dosage: 600 MG, QD
     Route: 048
     Dates: start: 20120907, end: 20120925
  4. REBETOL [Suspect]
     Dosage: 400 MG, QD
     Route: 048
     Dates: start: 20120926, end: 20121115
  5. REBETOL [Suspect]
     Dosage: 200 MG, QD
     Route: 048
     Dates: start: 20121116
  6. ALLOPURINOL [Suspect]
     Indication: ADVERSE EVENT
     Dosage: 200 MG, QD
     Route: 048
     Dates: start: 20120910, end: 20121023
  7. TAKEPRON [Concomitant]
     Dosage: 30 MG, QD
     Route: 048
     Dates: start: 20121006, end: 20121108
  8. DIOVAN [Concomitant]
     Dosage: 80 MG, QD
     Route: 048
  9. VANARL N [Concomitant]
     Dosage: 200 MG, QD
     Route: 048
     Dates: end: 20121018
  10. AMLODIPINE [Concomitant]
     Dosage: 5 MG, QD
     Route: 048
  11. JUVELA N [Concomitant]
     Dosage: 200 MG, QD
     Route: 048
     Dates: start: 20121019
  12. HIRUDOID [Concomitant]
     Dosage: 25G/ TUBE
     Route: 061
     Dates: start: 20121022
  13. CRAVIT [Concomitant]
     Dosage: 5ML/ BOTTLE TID FOR LEFT EYE
     Route: 031
     Dates: start: 20121105

REACTIONS (1)
  - Rash [Not Recovered/Not Resolved]
